FAERS Safety Report 14217126 (Version 1)
Quarter: 2017Q4

REPORT INFORMATION
  Report Type: Spontaneous
  Country: GB (occurrence: GB)
  Receive Date: 20171122
  Receipt Date: 20171122
  Transmission Date: 20180321
  Serious: No
  Sender: FDA-Public Use
  Company Number: GB-LUPIN PHARMACEUTICALS INC.-2016-05298

PATIENT
  Age: 52 Year
  Sex: Female
  Weight: 209.5 kg

DRUGS (3)
  1. ISOPHANE INSULIN [Concomitant]
     Active Substance: INSULIN NOS
     Indication: TYPE 1 DIABETES MELLITUS
     Dosage: 50 IU,BID,
     Route: 065
  2. ISOPHANE INSULIN [Concomitant]
     Active Substance: INSULIN NOS
     Dosage: 30 IU,UNK,UNKNOWN
     Route: 058
  3. METFORMIN [Suspect]
     Active Substance: METFORMIN HYDROCHLORIDE
     Indication: TYPE 1 DIABETES MELLITUS
     Dosage: UNK UNK,UNK,UNKNOWN
     Route: 065

REACTIONS (1)
  - Gastrointestinal disorder [Unknown]
